FAERS Safety Report 17807160 (Version 1)
Quarter: 2020Q2

REPORT INFORMATION
  Report Type: Report from Study
  Country: GB (occurrence: GB)
  Receive Date: 20200520
  Receipt Date: 20200520
  Transmission Date: 20200714
  Serious: Yes (Death, Hospitalization, Other)
  Sender: FDA-Public Use
  Company Number: GB-MYLANLABS-2020M1048594

PATIENT
  Age: 82 Year
  Sex: Male

DRUGS (3)
  1. SIMVASTATIN. [Suspect]
     Active Substance: SIMVASTATIN
     Indication: CARDIOVASCULAR DISORDER
     Dosage: 40 MG, 1D
     Route: 048
     Dates: start: 20110831, end: 202003
  2. AMOXICILLIN/CLAVULANIC ACID [Suspect]
     Active Substance: AMOXICILLIN\CLAVULANIC ACID
     Indication: CHRONIC OBSTRUCTIVE PULMONARY DISEASE
     Dosage: 1875 MILLIGRAM, QD(625 MG, TID)
     Route: 048
     Dates: start: 20200128, end: 20200204
  3. TIOTROPIUM [Suspect]
     Active Substance: TIOTROPIUM
     Indication: CHRONIC OBSTRUCTIVE PULMONARY DISEASE
     Dosage: UNK
     Route: 055
     Dates: start: 20191014, end: 20200117

REACTIONS (2)
  - Drug-induced liver injury [Recovering/Resolving]
  - Sudden death [Fatal]

NARRATIVE: CASE EVENT DATE: 20200304
